FAERS Safety Report 11703003 (Version 1)
Quarter: 2015Q4

REPORT INFORMATION
  Report Type: Spontaneous
  Country: US (occurrence: US)
  Receive Date: 20151105
  Receipt Date: 20151105
  Transmission Date: 20160304
  Serious: No
  Sender: FDA-Public Use
  Company Number: US-MERZ NORTH AMERICA, INC.-15MRZ-00607

PATIENT
  Sex: Female

DRUGS (2)
  1. CUVPOSA [Suspect]
     Active Substance: GLYCOPYRROLATE
     Indication: MIGRAINE
  2. CUVPOSA [Suspect]
     Active Substance: GLYCOPYRROLATE
     Indication: FOAMING AT MOUTH

REACTIONS (2)
  - Foaming at mouth [Unknown]
  - Condition aggravated [Unknown]
